FAERS Safety Report 11113157 (Version 3)
Quarter: 2015Q3

REPORT INFORMATION
  Report Type: Spontaneous
  Country: US (occurrence: US)
  Receive Date: 20150514
  Receipt Date: 20150715
  Transmission Date: 20151125
  Serious: Yes (Life-Threatening, Hospitalization, Other)
  Sender: FDA-Public Use
  Company Number: US-CELGENE-USA-2015052043

PATIENT
  Sex: Male

DRUGS (3)
  1. THALOMID [Suspect]
     Active Substance: THALIDOMIDE
     Indication: PLASMA CELL MYELOMA
     Route: 048
     Dates: start: 201009
  2. THALOMID [Suspect]
     Active Substance: THALIDOMIDE
     Route: 048
     Dates: start: 201504, end: 2015
  3. THALOMID [Suspect]
     Active Substance: THALIDOMIDE
     Route: 048
     Dates: start: 201505, end: 201505

REACTIONS (5)
  - Pneumonia [Unknown]
  - Splenomegaly [Not Recovered/Not Resolved]
  - Pericardial effusion [Unknown]
  - Unevaluable event [Unknown]
  - Pleural effusion [Unknown]

NARRATIVE: CASE EVENT DATE: 2015
